FAERS Safety Report 9747716 (Version 1)
Quarter: 2013Q4

REPORT INFORMATION
  Report Type: Spontaneous
  Country: US (occurrence: None)
  Receive Date: 20131211
  Receipt Date: 20131211
  Transmission Date: 20140711
  Serious: No
  Sender: FDA-Public Use
  Company Number: None

PATIENT
  Age: 23 Year
  Sex: Female
  Weight: 76.2 kg

DRUGS (1)
  1. MIRENA IUD [Suspect]

REACTIONS (4)
  - Palpitations [None]
  - Heart rate irregular [None]
  - Stress [None]
  - Herpes zoster [None]
